FAERS Safety Report 6706256-4 (Version None)
Quarter: 2010Q2

REPORT INFORMATION
  Report Type: 
  Country: None (occurrence: None)
  Receive Date: 20100503
  Receipt Date: 20100426
  Transmission Date: 20101027
  Serious: Yes (Hospitalization)
  Sender: FDA-Public Use
  Company Number: US-ALEXION-A201000475

PATIENT
  Sex: Female

DRUGS (1)
  1. SOLIRIS [Suspect]
     Route: 042

REACTIONS (2)
  - BLOOD LACTATE DEHYDROGENASE INCREASED [None]
  - GALLBLADDER DISORDER [None]
